FAERS Safety Report 7794951-8 (Version None)
Quarter: 2011Q4

REPORT INFORMATION
  Report Type: 
  Country: None (occurrence: None)
  Receive Date: 20111004
  Receipt Date: 20110923
  Transmission Date: 20120403
  Serious: Yes (Hospitalization)
  Sender: FDA-Public Use
  Company Number: NO-SANOFI-AVENTIS-2011SA062211

PATIENT
  Sex: Male

DRUGS (7)
  1. LANTUS [Concomitant]
     Route: 065
  2. WARFARIN SODIUM [Concomitant]
     Route: 048
  3. NOVORAPID [Concomitant]
     Route: 065
  4. MULTAQ [Suspect]
     Indication: ATRIAL FIBRILLATION
     Route: 048
     Dates: start: 20101001, end: 20110817
  5. BUMETANIDE [Concomitant]
     Route: 065
  6. LIPITOR [Concomitant]
     Route: 065
  7. ZESTRIL [Concomitant]
     Route: 065

REACTIONS (4)
  - SYNCOPE [None]
  - ELECTROCARDIOGRAM QT PROLONGED [None]
  - VENTRICULAR TACHYCARDIA [None]
  - TORSADE DE POINTES [None]
